FAERS Safety Report 11864272 (Version 1)
Quarter: 2015Q4

REPORT INFORMATION
  Report Type: Report from Study
  Country: US (occurrence: US)
  Receive Date: 20151223
  Receipt Date: 20151223
  Transmission Date: 20160305
  Serious: Yes (Death, Hospitalization)
  Sender: FDA-Public Use
  Company Number: US-PFIZER INC-2015461651

PATIENT
  Age: 70 Year
  Sex: Male
  Weight: 93.5 kg

DRUGS (20)
  1. 5-FLUOROURACIL [Suspect]
     Active Substance: FLUOROURACIL
     Indication: COLORECTAL CANCER METASTATIC
     Dosage: 400 MG/M2, UP TO 15 MINUTES; DAY 1 OF EACH 14-DAY CYCLE
     Route: 042
     Dates: start: 20150506, end: 20150506
  2. BEVACIZUMAB [Suspect]
     Active Substance: BEVACIZUMAB
     Indication: COLORECTAL CANCER METASTATIC
     Dosage: 490 MG, DAY 1 OF EACH 14-DAY CYCLE
     Route: 042
     Dates: start: 20150506, end: 20150506
  3. ATROPINE SULFATE. [Concomitant]
     Active Substance: ATROPINE SULFATE
     Indication: PREMEDICATION
     Dosage: UNK, 0.4 MG AS REQUIRED
     Route: 042
     Dates: start: 20150306, end: 20150518
  4. FLEXERIL [Concomitant]
     Active Substance: CYCLOBENZAPRINE HYDROCHLORIDE
     Indication: BACK PAIN
     Dosage: UNK, (1 TABLET, AS REQUIRED)
     Route: 048
     Dates: start: 2012, end: 20150518
  5. DEXAMETHASONE. [Concomitant]
     Active Substance: DEXAMETHASONE
     Indication: PREMEDICATION
     Dosage: 10 MG, AS REQUIRED
     Route: 042
     Dates: start: 20150506, end: 20150518
  6. AMIODARONE [Concomitant]
     Active Substance: AMIODARONE
     Indication: HEART RATE IRREGULAR
     Dosage: 1 DF, 1X/DAY (1 TABLET,1 IN 1 D)
     Route: 048
     Dates: start: 201405, end: 20150518
  7. NUCYNTA [Concomitant]
     Active Substance: TAPENTADOL HYDROCHLORIDE
     Indication: BACK PAIN
     Dosage: 50 MG, 1X/DAY (50 MG, 1 IN 1 D)
     Route: 048
     Dates: start: 201501, end: 20150518
  8. SPIRIVA [Concomitant]
     Active Substance: TIOTROPIUM BROMIDE MONOHYDRATE
     Indication: DYSPNOEA
     Dosage: 960 MG, AS REQUIRED
     Route: 055
     Dates: start: 2010, end: 20150518
  9. IRINOTECAN HCL [Suspect]
     Active Substance: IRINOTECAN HYDROCHLORIDE
     Indication: COLORECTAL CANCER METASTATIC
     Dosage: 180 MG/M2, 1 IN 2 WK (DAY 1 OF EACH 14-DAY CYCLE)
     Route: 042
     Dates: start: 20150506, end: 20150518
  10. ATORVASTATIN CALCIUM. [Concomitant]
     Active Substance: ATORVASTATIN CALCIUM
     Indication: HYPERCHOLESTEROLAEMIA
     Dosage: 1 UNK, UNK (1 TABLET, 1 IN 1 D)
     Route: 048
     Dates: start: 2010, end: 20150518
  11. NEURONTIN [Concomitant]
     Active Substance: GABAPENTIN
     Indication: NERVE INJURY
     Dosage: 1 DF, AS NEEDED (1 CAPSULE,AS REQUIRED)
     Route: 048
     Dates: start: 2012, end: 20150518
  12. LEUCOVORIN. [Concomitant]
     Active Substance: LEUCOVORIN
     Indication: COLORECTAL CANCER METASTATIC
     Dosage: 400 MG/M2, UNK
     Route: 042
     Dates: start: 20150506, end: 20150506
  13. DIPHENOXYLATE/ATROPINE [Concomitant]
     Active Substance: ATROPINE\DIPHENOXYLATE
     Indication: DIARRHOEA
     Dosage: 2.5 MG, AS REQUIRED
     Route: 048
     Dates: start: 20150508, end: 20150518
  14. PALONOSETRON [Concomitant]
     Active Substance: PALONOSETRON
     Indication: PREMEDICATION
     Dosage: 0.25 MG, AS REQUIRED
     Route: 042
     Dates: start: 20150306, end: 20150318
  15. 5-FLUOROURACIL [Suspect]
     Active Substance: FLUOROURACIL
     Dosage: 2400 MG/M2, OVER 46 HOURS; DAY 1 OF EACH 14-DAY CYCLE
     Route: 042
     Dates: start: 20150506, end: 20150508
  16. BLINDED THERAPY [Suspect]
     Active Substance: INVESTIGATIONAL PRODUCT
     Indication: COLORECTAL CANCER METASTATIC
     Dosage: UNK. DAY-2 THROUGH DAY 5 OF EACH 14-DAY CYCLE. (2 IN 1 D)
     Route: 048
     Dates: start: 20150504, end: 20150506
  17. NORTRIPTYLINE [Concomitant]
     Active Substance: NORTRIPTYLINE
     Indication: NERVE INJURY
     Dosage: 1 DF, AS NEEDED (1 CAPSULE,AS REQUIRED)
     Route: 048
     Dates: start: 2012, end: 20150518
  18. IMODIUM [Concomitant]
     Active Substance: LOPERAMIDE HYDROCHLORIDE
     Indication: DIARRHOEA
     Dosage: 1 DF, AS NEEDED
     Route: 048
     Dates: start: 20150507, end: 20150518
  19. MAGIC MOUTHWASH [Concomitant]
     Active Substance: DIPHENHYDRAMINE HYDROCHLORIDE\LIDOCAINE HYDROCHLORIDE\NYSTATIN
     Indication: MUCOSAL INFLAMMATION
     Dosage: 5 MG, AS REQUIRED
     Route: 048
     Dates: start: 20150509, end: 20150518
  20. LOMOTIL [Concomitant]
     Active Substance: ATROPINE SULFATE\DIPHENOXYLATE HYDROCHLORIDE
     Indication: DIARRHOEA
     Dosage: 2.5/0.025, AS REQUIRED
     Route: 048
     Dates: start: 20150508, end: 20150518

REACTIONS (2)
  - Cardiac arrest [Fatal]
  - Neutropenia [Recovered/Resolved]

NARRATIVE: CASE EVENT DATE: 20150515
